FAERS Safety Report 9583745 (Version 1)
Quarter: 2013Q4

REPORT INFORMATION
  Report Type: Spontaneous
  Country: US (occurrence: US)
  Receive Date: 20131002
  Receipt Date: 20131002
  Transmission Date: 20140711
  Serious: No
  Sender: FDA-Public Use
  Company Number: US-AMGEN-USASP2013049613

PATIENT
  Age: 49 Year
  Sex: Male
  Weight: 68 kg

DRUGS (6)
  1. ENBREL [Suspect]
     Indication: PRODUCT USED FOR UNKNOWN INDICATION
     Dosage: 50 MG, QWK
     Route: 058
     Dates: start: 201211
  2. METHOTREXATE [Concomitant]
     Dosage: 2.5 MG, UNK
  3. PREDNISONE [Concomitant]
     Dosage: 1 MG, UNK
  4. FOLIC ACID [Concomitant]
     Dosage: UNK
  5. VITAMIN B6 [Concomitant]
     Dosage: 250 MG, UNK
  6. PERCOCET                           /00867901/ [Concomitant]
     Dosage: 2.5-325

REACTIONS (1)
  - Drug ineffective [Unknown]
